FAERS Safety Report 14236580 (Version 1)
Quarter: 2017Q4

REPORT INFORMATION
  Report Type: Spontaneous
  Country: US (occurrence: US)
  Receive Date: 20171129
  Receipt Date: 20171129
  Transmission Date: 20180321
  Serious: No
  Sender: FDA-Public Use
  Company Number: US-PFIZER INC-2017510820

PATIENT
  Age: 5 Year
  Sex: Female

DRUGS (3)
  1. SOMATROPIN. [Suspect]
     Active Substance: SOMATROPIN
     Dosage: 0.6 MG, UNK [3 DAYS A WEEK]
  2. LEVOTHYROXINE SODIUM. [Suspect]
     Active Substance: LEVOTHYROXINE SODIUM
     Dosage: UNK, 1X/DAY [12.5, UNIT UNSPECIFIED]
     Route: 048
  3. SOMATROPIN. [Suspect]
     Active Substance: SOMATROPIN
     Dosage: 0.5 MG, UNK [4 DAYS A WEEK]

REACTIONS (4)
  - Blood thyroid stimulating hormone decreased [Unknown]
  - Insulin-like growth factor increased [Unknown]
  - Injection site reaction [Recovered/Resolved]
  - Injection site bruising [Unknown]
